FAERS Safety Report 25011429 (Version 3)
Quarter: 2025Q3

REPORT INFORMATION
  Report Type: Other
  Country: CA (occurrence: CA)
  Receive Date: 20250226
  Receipt Date: 20250806
  Transmission Date: 20251021
  Serious: Yes (Hospitalization)
  Sender: APOTEX
  Company Number: CA-APOTEX-2025AP002470

PATIENT
  Age: 72 Year
  Sex: Male

DRUGS (1)
  1. AMBRISENTAN [Suspect]
     Active Substance: AMBRISENTAN
     Indication: Pulmonary arterial hypertension
     Dosage: 5 MILLIGRAM, QD
     Route: 048

REACTIONS (5)
  - Lower limb fracture [Unknown]
  - Peripheral swelling [Unknown]
  - Weight increased [Unknown]
  - Hospitalisation [Unknown]
  - Bedridden [Unknown]
